FAERS Safety Report 7658982-0 (Version None)
Quarter: 2011Q3

REPORT INFORMATION
  Report Type: 
  Country: None (occurrence: None)
  Receive Date: 20110805
  Receipt Date: 20110722
  Transmission Date: 20111222
  Serious: Yes (Hospitalization, Other)
  Sender: FDA-Public Use
  Company Number: US-ELI_LILLY_AND_COMPANY-US201102002681

PATIENT
  Sex: Female

DRUGS (15)
  1. FORTEO [Suspect]
     Indication: OSTEOPOROSIS
     Dosage: 20 UG, DAILY (1/D)
     Route: 065
     Dates: start: 20101203, end: 20110201
  2. LEXAPRO [Concomitant]
  3. KLOZAPIN [Concomitant]
  4. AMBIEN [Concomitant]
  5. XANAX [Concomitant]
  6. FISH OIL [Concomitant]
  7. FERROUS SULFATE TAB [Concomitant]
  8. WELLBUTRIN [Concomitant]
  9. FIORICET [Concomitant]
  10. TRILIPIX [Concomitant]
  11. FORTEO [Suspect]
     Dosage: 20 UG, QD
  12. PREVACID [Concomitant]
  13. DILTIAZEM [Concomitant]
  14. LIPITOR [Concomitant]
  15. VITAMIN D [Concomitant]
     Dosage: 5000 IU, UNK

REACTIONS (8)
  - MASTECTOMY [None]
  - DYSPNOEA [None]
  - IRRITABILITY [None]
  - CATARACT OPERATION [None]
  - STRESS [None]
  - PNEUMONIA [None]
  - INJECTION SITE HAEMATOMA [None]
  - ALOPECIA [None]
